FAERS Safety Report 21731883 (Version 4)
Quarter: 2023Q1

REPORT INFORMATION
  Report Type: Spontaneous
  Country: BR (occurrence: BR)
  Receive Date: 20221215
  Receipt Date: 20230109
  Transmission Date: 20230418
  Serious: Yes (Other)
  Sender: FDA-Public Use
  Company Number: BR-JNJFOC-20221167226

PATIENT
  Age: 73 Year
  Sex: Male

DRUGS (8)
  1. ERLEADA [Suspect]
     Active Substance: APALUTAMIDE
     Indication: Hormone-refractory prostate cancer
     Route: 048
     Dates: start: 20220102
  2. ERLEADA [Suspect]
     Active Substance: APALUTAMIDE
     Indication: Metastases to bone
  3. ABIRATERONE ACETATE [Suspect]
     Active Substance: ABIRATERONE ACETATE
     Indication: Metastases to bone
     Route: 048
  4. ABIRATERONE ACETATE [Suspect]
     Active Substance: ABIRATERONE ACETATE
     Indication: Hormone-refractory prostate cancer
  5. BICALUTAMIDE [Suspect]
     Active Substance: BICALUTAMIDE
     Indication: Metastases to bone
     Route: 065
  6. BICALUTAMIDE [Suspect]
     Active Substance: BICALUTAMIDE
     Indication: Hormone-refractory prostate cancer
  7. DOCETAXEL [Suspect]
     Active Substance: DOCETAXEL
     Indication: Metastases to bone
     Route: 065
  8. DOCETAXEL [Suspect]
     Active Substance: DOCETAXEL
     Indication: Hormone-refractory prostate cancer

REACTIONS (4)
  - Unevaluable event [Unknown]
  - Suspected counterfeit product [Unknown]
  - Counterfeit product administered [Unknown]
  - Product packaging issue [Unknown]
